FAERS Safety Report 8809025 (Version 1)
Quarter: 2012Q4

REPORT INFORMATION
  Report Type: Spontaneous
  Country: US (occurrence: None)
  Receive Date: 20120921
  Receipt Date: 20120921
  Transmission Date: 20130627
  Serious: Yes (Other)
  Sender: FDA-Public Use
  Company Number: None

PATIENT
  Age: 2 Year
  Sex: Male
  Weight: 13.61 kg

DRUGS (1)
  1. HYDROCODONE/APAP [Suspect]
     Indication: POSTOPERATIVE PAIN
     Dosage: 4 ml (cc) every 4 hours by mouth
     Route: 048
     Dates: start: 20120329, end: 20120331

REACTIONS (7)
  - Sleep apnoea syndrome [None]
  - Sleep terror [None]
  - Screaming [None]
  - Delusion [None]
  - Hypotonia [None]
  - Dysphagia [None]
  - Mastication disorder [None]
